FAERS Safety Report 9837960 (Version 3)
Quarter: 2014Q1

REPORT INFORMATION
  Report Type: Spontaneous
  Country: IL (occurrence: IL)
  Receive Date: 20140123
  Receipt Date: 20140312
  Transmission Date: 20141002
  Serious: Yes (Hospitalization)
  Sender: FDA-Public Use
  Company Number: IL-NOVOPROD-397974

PATIENT
  Age: 16 Year
  Sex: Male
  Weight: 71 kg

DRUGS (5)
  1. NORDITROPIN SIMPLEXX [Suspect]
     Indication: GROWTH HORMONE DEFICIENCY
     Dosage: 0.015 MG/KG, QD
     Route: 065
  2. TEGRETOL [Concomitant]
     Indication: CONVULSION
     Dosage: UNKNOWN
     Route: 065
  3. LAMICTAL [Concomitant]
     Indication: CONVULSION
     Dosage: UNKNOWN
     Route: 065
  4. FRISIUM [Concomitant]
     Indication: CONVULSION
     Dosage: UNKNOWN
     Route: 065
  5. TESTOSTERONE [Concomitant]
     Indication: HYPOGONADISM
     Dosage: UNKNOWN
     Route: 065

REACTIONS (2)
  - Pericardial effusion [Recovered/Resolved]
  - Lower limb fracture [Recovered/Resolved]
